FAERS Safety Report 4830531-1 (Version None)
Quarter: 2005Q4

REPORT INFORMATION
  Report Type: 
  Country: None (occurrence: None)
  Receive Date: 20051115
  Receipt Date: 20051104
  Transmission Date: 20060501
  Serious: Yes (Death, Other)
  Sender: FDA-Public Use
  Company Number: 2005147441

PATIENT
  Age: 91 Year
  Sex: Female
  Weight: 54.4316 kg

DRUGS (7)
  1. CELEBREX [Suspect]
     Indication: ARTHRITIS
     Dosage: 200 MG (200 MG, 1 IN 1 D),
     Dates: start: 20050101
  2. CELEBREX [Suspect]
     Indication: PAIN IN EXTREMITY
     Dosage: 200 MG (200 MG, 1 IN 1 D),
     Dates: start: 20050101
  3. FOSAMAX [Concomitant]
  4. SYNTHROID [Concomitant]
  5. CALTRATE (CALCIUM CARBONATE) [Concomitant]
  6. VITAMINS (VITAMINS) [Concomitant]
  7. ALL OTHER THERAPEUTIC PRODUCTS (ALL OTHER THERAPEUTIC PRODUCTS) [Concomitant]

REACTIONS (3)
  - COUGH [None]
  - ORAL INTAKE REDUCED [None]
  - TRANSIENT ISCHAEMIC ATTACK [None]
